FAERS Safety Report 4855282-9 (Version None)
Quarter: 2005Q4

REPORT INFORMATION
  Report Type: 
  Country: None (occurrence: None)
  Receive Date: 20051125
  Receipt Date: 20050720
  Transmission Date: 20060501
  Serious: Yes (Hospitalization)
  Sender: FDA-Public Use
  Company Number: US-JNJFOC-20050704310

PATIENT
  Age: 33 Year
  Sex: Female
  Weight: 71.2147 kg

DRUGS (5)
  1. LEVAQUIN [Suspect]
     Indication: URINARY TRACT INFECTION
     Dates: start: 20050602, end: 20050612
  2. IBUPROFEN [Suspect]
     Indication: DYSMENORRHOEA
     Dosage: 800 MG
     Dates: start: 20050610, end: 20050613
  3. NORETHINDRONE ACETATE [Suspect]
     Indication: ENDOMETRIOSIS
     Dosage: 7.5 MG, 1 IN 1 DAY; 15 MG
     Dates: start: 20050308, end: 20050419
  4. NORETHINDRONE ACETATE [Suspect]
     Indication: ENDOMETRIOSIS
     Dosage: 7.5 MG, 1 IN 1 DAY; 15 MG
     Dates: start: 20050419, end: 20050613
  5. NARCOTICS (ANALGESICS) [Concomitant]

REACTIONS (3)
  - DYSMENORRHOEA [None]
  - JAUNDICE [None]
  - RENAL FAILURE [None]
